FAERS Safety Report 6028219-7 (Version None)
Quarter: 2008Q4

REPORT INFORMATION
  Report Type: 
  Country: None (occurrence: None)
  Receive Date: 20081231
  Receipt Date: 20081231
  Transmission Date: 20090506
  Serious: Yes (Hospitalization)
  Sender: FDA-Public Use
  Company Number: None

PATIENT
  Age: 57 Year
  Sex: Male

DRUGS (1)
  1. NALTREXONE [Suspect]
     Indication: ALCOHOL ABUSE
     Dosage: 50 MG AM PO
     Route: 048
     Dates: start: 20080905, end: 20080919

REACTIONS (5)
  - ANXIETY [None]
  - HALLUCINATIONS, MIXED [None]
  - NIGHTMARE [None]
  - PARANOIA [None]
  - THINKING ABNORMAL [None]
